FAERS Safety Report 6167250-8 (Version None)
Quarter: 2009Q2

REPORT INFORMATION
  Report Type: 
  Country: None (occurrence: None)
  Receive Date: 20090424
  Receipt Date: 20090416
  Transmission Date: 20091009
  Serious: Yes (Other)
  Sender: FDA-Public Use
  Company Number: GB-TEVA-191979ISR

PATIENT
  Age: 94 Year
  Sex: Female

DRUGS (1)
  1. ALENDRONIC ACID [Suspect]
     Indication: OSTEOPOROSIS
     Route: 048
     Dates: start: 20030509, end: 20090209

REACTIONS (2)
  - ARTHRALGIA [None]
  - OSTEONECROSIS [None]
